FAERS Safety Report 24922241 (Version 2)
Quarter: 2025Q1

REPORT INFORMATION
  Report Type: Spontaneous
  Country: PT (occurrence: PT)
  Receive Date: 20250204
  Receipt Date: 20250211
  Transmission Date: 20250409
  Serious: Yes (Other)
  Sender: PFIZER
  Company Number: PT-MLMSERVICE-20250124-PI366706-00232-2

PATIENT
  Age: 63 Year
  Sex: Female

DRUGS (6)
  1. METHYLPREDNISOLONE [Suspect]
     Active Substance: METHYLPREDNISOLONE
     Indication: Immunosuppressant drug therapy
  2. RITUXIMAB [Suspect]
     Active Substance: RITUXIMAB
     Indication: Immunosuppressant drug therapy
  3. MYCOPHENOLATE MOFETIL [Suspect]
     Active Substance: MYCOPHENOLATE MOFETIL
     Indication: Immunosuppressant drug therapy
  4. TACROLIMUS [Suspect]
     Active Substance: TACROLIMUS
     Indication: Dermatomyositis
     Route: 061
  5. DEFLAZACORT [Suspect]
     Active Substance: DEFLAZACORT
     Indication: Immunosuppressant drug therapy
     Dosage: 60 MG, 1X/DAY
  6. DEFLAZACORT [Suspect]
     Active Substance: DEFLAZACORT
     Dosage: WITH A PLANNED TAPER TO 40 MG, 1X/DAY

REACTIONS (2)
  - Fungal infection [Unknown]
  - Influenza [Unknown]
